FAERS Safety Report 5616197-1 (Version None)
Quarter: 2008Q1

REPORT INFORMATION
  Report Type: 
  Country: None (occurrence: None)
  Receive Date: 20080206
  Receipt Date: 20080204
  Transmission Date: 20080703
  Serious: Yes (Hospitalization)
  Sender: FDA-Public Use
  Company Number: LB-MERCK-0802USA00697

PATIENT
  Age: 67 Year
  Sex: Male

DRUGS (3)
  1. PROSCAR [Suspect]
     Indication: BENIGN PROSTATIC HYPERPLASIA
     Route: 048
  2. ZYLORIC [Concomitant]
     Route: 048
  3. XATRAL [Concomitant]
     Route: 048

REACTIONS (1)
  - CARDIAC DISORDER [None]
